FAERS Safety Report 9515965 (Version 2)
Quarter: 2013Q3

REPORT INFORMATION
  Report Type: Spontaneous
  Country: US (occurrence: US)
  Receive Date: 20130911
  Receipt Date: 20130911
  Transmission Date: 20140515
  Serious: No
  Sender: FDA-Public Use
  Company Number: US-ASTRAZENECA-2013SE51152

PATIENT
  Age: 848 Month
  Sex: Male
  Weight: 86.6 kg

DRUGS (8)
  1. SYMBICORT [Suspect]
     Indication: ASTHMA
     Dosage: 160/4.5 MCG, 1 PUFF TWO TIMES A DAY
     Route: 055
     Dates: start: 201303
  2. SYMBICORT [Suspect]
     Indication: ASTHMA
     Dosage: 160/4.5 MCG, 1 PUFF ONCE A DAY
     Route: 055
  3. OMEPRAZOLE [Suspect]
     Indication: GASTROOESOPHAGEAL REFLUX DISEASE
     Route: 048
  4. LEVOTHYROXINE [Concomitant]
  5. MONTELUKAST [Concomitant]
  6. ADVIL GELCAPS [Concomitant]
  7. ONE A DAY [Concomitant]
  8. PROVENTIL [Concomitant]

REACTIONS (3)
  - Abdominal distension [Unknown]
  - Weight increased [Unknown]
  - Off label use [Unknown]
